FAERS Safety Report 12862280 (Version 2)
Quarter: 2016Q4

REPORT INFORMATION
  Report Type: Report from Study
  Country: CO (occurrence: CO)
  Receive Date: 20161019
  Receipt Date: 20161128
  Transmission Date: 20170207
  Serious: Yes (Hospitalization)
  Sender: FDA-Public Use
  Company Number: CO-JNJFOC-20161012684

PATIENT
  Age: 72 Year
  Sex: Female
  Weight: 50 kg

DRUGS (1)
  1. RISPERDAL CONSTA [Suspect]
     Active Substance: RISPERIDONE
     Indication: BIPOLAR DISORDER
     Route: 030
     Dates: start: 20160825

REACTIONS (6)
  - Confusional state [Recovering/Resolving]
  - Insomnia [Recovering/Resolving]
  - Logorrhoea [Recovering/Resolving]
  - Disorientation [Recovering/Resolving]
  - Anxiety [Unknown]
  - Mania [Recovering/Resolving]

NARRATIVE: CASE EVENT DATE: 20161003
